FAERS Safety Report 23788544 (Version 1)
Quarter: 2024Q2

REPORT INFORMATION
  Report Type: Spontaneous
  Country: GB (occurrence: GB)
  Receive Date: 20240426
  Receipt Date: 20240426
  Transmission Date: 20240716
  Serious: Yes (Hospitalization, Other)
  Sender: FDA-Public Use
  Company Number: None

PATIENT
  Age: 46 Year
  Sex: Female

DRUGS (2)
  1. PROGESTERONE [Suspect]
     Active Substance: PROGESTERONE
     Indication: Product used for unknown indication
     Dosage: UPON PLACING THE LAST PATCH OF PROGESTERONE; ;
     Route: 065
     Dates: start: 20190823
  2. ESTRADIOL\NORETHINDRONE ACETATE [Suspect]
     Active Substance: ESTRADIOL\NORETHINDRONE ACETATE
     Indication: Product used for unknown indication
     Dosage: SUPPLIER NAME: JANSSEN; ;
     Route: 065
     Dates: start: 20190823

REACTIONS (7)
  - Breast pain [Unknown]
  - Paget^s disease of nipple [Unknown]
  - HER2 positive breast cancer [Unknown]
  - Breast mass [Unknown]
  - Breast cancer metastatic [Unknown]
  - Intraductal proliferative breast lesion [Unknown]
  - Malaise [Unknown]

NARRATIVE: CASE EVENT DATE: 20190101
